FAERS Safety Report 5487809-0 (Version None)
Quarter: 2007Q4

REPORT INFORMATION
  Report Type: 
  Country: None (occurrence: None)
  Receive Date: 20071001
  Receipt Date: 20070123
  Transmission Date: 20080405
  Serious: Yes (Hospitalization, Other)
  Sender: FDA-Public Use
  Company Number: TPA2006A01685

PATIENT
  Sex: Male

DRUGS (7)
  1. ACTOS [Suspect]
     Indication: TYPE 2 DIABETES MELLITUS
     Dosage: 45 MG, 1 IN 1 D, PER ORAL
     Route: 048
     Dates: end: 20060919
  2. ALTACE [Concomitant]
  3. LIPITOR [Concomitant]
  4. DYAZIDE [Concomitant]
  5. PAXIL [Concomitant]
  6. ATENOLOL [Concomitant]
  7. NEURONTIN [Concomitant]

REACTIONS (1)
  - CARDIAC FAILURE CONGESTIVE [None]
